FAERS Safety Report 13757241 (Version 1)
Quarter: 2017Q3

REPORT INFORMATION
  Report Type: Spontaneous
  Country: US (occurrence: US)
  Receive Date: 20170716
  Receipt Date: 20170716
  Transmission Date: 20171127
  Serious: Yes (Disabling)
  Sender: FDA-Public Use
  Company Number: None

PATIENT
  Age: 65 Year
  Sex: Male
  Weight: 104.4 kg

DRUGS (21)
  1. LISINOPRIL. [Concomitant]
     Active Substance: LISINOPRIL
  2. MULTIPLE VITAMIN [Concomitant]
     Active Substance: VITAMINS
  3. DIAZAPHEM [Concomitant]
  4. OXYCODONE [Concomitant]
     Active Substance: OXYCODONE
  5. FISH OIL (OMEGA 3) [Concomitant]
  6. VITAMIN D [Concomitant]
     Active Substance: CHOLECALCIFEROL
  7. PYMCOHRNOL [Concomitant]
  8. INSULIN [Concomitant]
     Active Substance: INSULIN NOS
  9. NEUROLITE [Concomitant]
     Active Substance: BICISATE DIHYDROCHLORIDE
  10. CURCUMIN [Concomitant]
     Active Substance: CURCUMIN
  11. ASPIRIN. [Concomitant]
     Active Substance: ASPIRIN
  12. METAMUCIL [Concomitant]
     Active Substance: PLANTAGO SEED
  13. EMERGEN-C [Concomitant]
     Active Substance: VITAMINS
  14. GRNSING [Concomitant]
  15. FINASTERIDE. [Suspect]
     Active Substance: FINASTERIDE
     Indication: PROPHYLAXIS
     Route: 048
  16. MORPHINE [Concomitant]
     Active Substance: MORPHINE
  17. L ARGRNINR [Concomitant]
  18. MIRALAX [Concomitant]
     Active Substance: POLYETHYLENE GLYCOL 3350
  19. MITRIC OCIDE [Concomitant]
  20. TESTERONE BOOSTER [Concomitant]
  21. L-CITRILLINR [Concomitant]

REACTIONS (7)
  - Divorced [None]
  - Mental impairment [None]
  - Pain [None]
  - Gynaecomastia [None]
  - Erectile dysfunction [None]
  - Social avoidant behaviour [None]
  - Arthralgia [None]
